FAERS Safety Report 4797429-9 (Version None)
Quarter: 2005Q4

REPORT INFORMATION
  Report Type: 
  Country: None (occurrence: None)
  Receive Date: 20051011
  Receipt Date: 20051011
  Transmission Date: 20060501
  Serious: Yes (Hospitalization)
  Sender: FDA-Public Use
  Company Number: None

PATIENT
  Age: 69 Year
  Sex: Male
  Weight: 98.9 kg

DRUGS (2)
  1. RIBAVIRIN [Suspect]
     Indication: HEPATITIS C
     Dosage: 1200MG,600MGBID,ORAL
     Route: 048
     Dates: start: 20050609, end: 20050823
  2. PEGINTERFERON [Concomitant]

REACTIONS (1)
  - ANAEMIA [None]
